FAERS Safety Report 9813878 (Version 1)
Quarter: 2014Q1

REPORT INFORMATION
  Report Type: Spontaneous
  Country: US (occurrence: US)
  Receive Date: 20140113
  Receipt Date: 20140113
  Transmission Date: 20141002
  Serious: No
  Sender: FDA-Public Use
  Company Number: US-GILEAD-2011-0038100

PATIENT
  Sex: Male

DRUGS (1)
  1. TRUVADA [Suspect]
     Indication: HEPATITIS B

REACTIONS (3)
  - Hepatitis B [Unknown]
  - Hepatomegaly [Unknown]
  - Hepatic pain [Unknown]
